FAERS Safety Report 7658233-7 (Version None)
Quarter: 2011Q3

REPORT INFORMATION
  Report Type: 
  Country: None (occurrence: None)
  Receive Date: 20110802
  Receipt Date: 20110718
  Transmission Date: 20111222
  Serious: Yes (Life-Threatening, Hospitalization, Other)
  Sender: FDA-Public Use
  Company Number: 2011MA009411

PATIENT
  Age: 82 Year
  Sex: Male

DRUGS (9)
  1. AMLODIPINE [Concomitant]
  2. METFORMIN HCL [Concomitant]
  3. LEVOTHYROXINE SODIUM [Concomitant]
  4. LANTUS [Concomitant]
  5. CO-AMILOFRUSE (PRUMIL) [Suspect]
     Dosage: ;QD;PO
     Route: 048
     Dates: start: 20110120, end: 20110311
  6. SENNA [Concomitant]
  7. RAMIPRIL [Suspect]
     Dosage: 10 MG; QD; PO
     Route: 048
     Dates: start: 20020820, end: 20110311
  8. GLIMEPIRIDE [Concomitant]
  9. ACETYLSALICYLIC ACID SRT [Concomitant]

REACTIONS (2)
  - RENAL FAILURE ACUTE [None]
  - HYPERKALAEMIA [None]
